FAERS Safety Report 25847835 (Version 1)
Quarter: 2025Q3

REPORT INFORMATION
  Report Type: Other
  Country: US (occurrence: US)
  Receive Date: 20250925
  Receipt Date: 20250925
  Transmission Date: 20251020
  Serious: Yes (Hospitalization, Other)
  Sender: NOVA LABORATORIES LIMITED
  Company Number: US-Nova Laboratories Limited-2185290

PATIENT
  Age: 3 Year
  Sex: Male

DRUGS (1)
  1. XROMI [Suspect]
     Active Substance: HYDROXYUREA
     Indication: Sickle cell disease

REACTIONS (3)
  - Overdose [Recovered/Resolved]
  - Product prescribing issue [Recovered/Resolved]
  - Myelosuppression [Recovered/Resolved]
